FAERS Safety Report 25620530 (Version 1)
Quarter: 2025Q3

REPORT INFORMATION
  Report Type: Spontaneous
  Country: CN (occurrence: CN)
  Receive Date: 20250730
  Receipt Date: 20250730
  Transmission Date: 20251021
  Serious: Yes (Other)
  Sender: ASTELLAS
  Company Number: CN-ASTELLAS-2025-AER-041258

PATIENT
  Age: 72 Year
  Sex: Male
  Weight: 60 kg

DRUGS (2)
  1. ISAVUCONAZOLE [Suspect]
     Active Substance: ISAVUCONAZOLE
     Indication: Aspergillus infection
     Dosage: CONCENTRATE FOR SOLUTION FOR INFUSION
     Route: 050
     Dates: start: 20250608, end: 20250610
  2. ISAVUCONAZOLE [Suspect]
     Active Substance: ISAVUCONAZOLE
     Dosage: CONCENTRATE FOR SOLUTION FOR INFUSION
     Route: 050
     Dates: start: 20250610, end: 20250612

REACTIONS (1)
  - Amylase increased [Recovering/Resolving]

NARRATIVE: CASE EVENT DATE: 20250609
